FAERS Safety Report 7844856-9 (Version None)
Quarter: 2011Q4

REPORT INFORMATION
  Report Type: 
  Country: None (occurrence: None)
  Receive Date: 20111025
  Receipt Date: 20111018
  Transmission Date: 20120403
  Serious: Yes (Other)
  Sender: FDA-Public Use
  Company Number: FR-GLAXOSMITHKLINE-B0757017A

PATIENT
  Sex: Female

DRUGS (3)
  1. ZOPICLONE [Concomitant]
  2. LAMICTAL [Suspect]
     Indication: BIPOLAR DISORDER
     Dosage: 50MG TWICE PER DAY
     Route: 048
     Dates: start: 20020101
  3. ALPRAZOLAM [Concomitant]

REACTIONS (3)
  - CONVULSION [None]
  - HEADACHE [None]
  - CONTUSION [None]
